FAERS Safety Report 14680671 (Version 1)
Quarter: 2018Q1

REPORT INFORMATION
  Report Type: Spontaneous
  Country: US (occurrence: US)
  Receive Date: 20180324
  Receipt Date: 20180324
  Transmission Date: 20180509
  Serious: No
  Sender: FDA-Public Use
  Company Number: None

PATIENT
  Age: 67 Year
  Sex: Female

DRUGS (1)
  1. TYMLOS [Suspect]
     Active Substance: ABALOPARATIDE

REACTIONS (4)
  - Sleep disorder [None]
  - Bone disorder [None]
  - Pain [None]
  - Chest pain [None]

NARRATIVE: CASE EVENT DATE: 20180322
